FAERS Safety Report 8381113 (Version 2)
Quarter: 2013Q1

REPORT INFORMATION
  Report Type: Report from Study
  Country: US (occurrence: US)
  Receive Date: 20120129
  Receipt Date: 20130129
  Transmission Date: 20140127
  Serious: No
  Sender: FDA-Public Use
  Company Number: US-ABBOTT-11P-163-0863154-00

PATIENT
  Sex: Female
  Weight: 70.37 kg

DRUGS (12)
  1. HUMIRA 40 MG/0.8 ML PEN [Suspect]
     Indication: ANKYLOSING SPONDYLITIS
     Dates: start: 201104, end: 201111
  2. HUMIRA 40 MG/0.8 ML PEN [Suspect]
     Route: 058
     Dates: start: 201203
  3. RESTASIS [Concomitant]
     Indication: DRY EYE
     Dosage: ONE DROP TO EACH EYE DAILY
  4. PAT-A-DAY [Concomitant]
     Indication: PRODUCT USED FOR UNKNOWN INDICATION
     Dosage: ONE DROP TO EACH EYE DAILY
  5. HYDROCODONE [Concomitant]
     Indication: PAIN
     Dosage: 1-2 TIMES DAILY
  6. CYMBALTA [Concomitant]
     Indication: DEPRESSION
     Dosage: 30MG IN THE AM, 60MG IN THE EVENING
  7. CYMBALTA [Concomitant]
     Indication: PAIN MANAGEMENT
  8. VITAMINS [Concomitant]
     Indication: PRODUCT USED FOR UNKNOWN INDICATION
     Dosage: DAILY
  9. SUPPLEMENTS [Concomitant]
     Indication: PRODUCT USED FOR UNKNOWN INDICATION
     Dosage: DAILY
  10. VITAMIN B12 [Concomitant]
     Indication: PRODUCT USED FOR UNKNOWN INDICATION
  11. APAP [Concomitant]
     Indication: PAIN
  12. STERIOD INJECTION [Concomitant]
     Indication: PRODUCT USED FOR UNKNOWN INDICATION
     Route: 030

REACTIONS (11)
  - Rash [Recovered/Resolved]
  - Rash [Recovered/Resolved]
  - Rash [Recovered/Resolved]
  - Rash [Recovered/Resolved]
  - Rash papular [Recovered/Resolved]
  - Eye pruritus [Not Recovered/Not Resolved]
  - Rhinorrhoea [Not Recovered/Not Resolved]
  - Rash generalised [Recovered/Resolved]
  - Pneumonia [Recovered/Resolved]
  - Bronchiectasis [Not Recovered/Not Resolved]
  - Pulmonary mass [Not Recovered/Not Resolved]
